FAERS Safety Report 7388012-X (Version None)
Quarter: 2011Q1

REPORT INFORMATION
  Report Type: 
  Country: None (occurrence: None)
  Receive Date: 20110322
  Receipt Date: 20110308
  Transmission Date: 20110831
  Serious: Yes (Other)
  Sender: FDA-Public Use
  Company Number: 2011SP010543

PATIENT

DRUGS (2)
  1. REBETOL [Suspect]
     Indication: HEPATITIS C
     Dosage: 800 MG, QD, PO
     Route: 048
     Dates: start: 20100401
  2. PEG-INTRON [Suspect]
     Indication: HEPATITIS C
     Dosage: 100 MCG, QW, SC
     Route: 058
     Dates: start: 20100401

REACTIONS (1)
  - PANNICULITIS [None]
